FAERS Safety Report 13556683 (Version 1)
Quarter: 2017Q2

REPORT INFORMATION
  Report Type: Spontaneous
  Country: US (occurrence: US)
  Receive Date: 20170517
  Receipt Date: 20170517
  Transmission Date: 20170830
  Serious: Yes (Hospitalization)
  Sender: FDA-Public Use
  Company Number: None

PATIENT
  Age: 62 Year
  Sex: Male
  Weight: 115 kg

DRUGS (3)
  1. 5-FLUOROURACIL (5-FU) [Suspect]
     Active Substance: FLUOROURACIL
     Dates: end: 20161205
  2. ELOXATIN [Suspect]
     Active Substance: OXALIPLATIN
     Dates: end: 20161205
  3. LEUCOVORIN CALCIUM. [Suspect]
     Active Substance: LEUCOVORIN CALCIUM
     Dates: end: 20161205

REACTIONS (2)
  - Anastomotic stenosis [None]
  - Anal incontinence [None]

NARRATIVE: CASE EVENT DATE: 20170416
